FAERS Safety Report 7358430-4 (Version None)
Quarter: 2011Q1

REPORT INFORMATION
  Report Type: 
  Country: None (occurrence: None)
  Receive Date: 20110307
  Receipt Date: 20091231
  Transmission Date: 20110831
  Serious: No
  Sender: FDA-Public Use
  Company Number: AEUSA201000001

PATIENT
  Age: 58 Year
  Sex: Male
  Weight: 85.2762 kg

DRUGS (2)
  1. MEDROL [Concomitant]
  2. PROLASTIN [Suspect]
     Indication: ALPHA-1 ANTI-TRYPSIN DEFICIENCY
     Dosage: 10260 MG; QW; IV
     Route: 042
     Dates: start: 19910101

REACTIONS (2)
  - INFUSION RELATED REACTION [None]
  - CHEST DISCOMFORT [None]
